FAERS Safety Report 19070183 (Version 2)
Quarter: 2022Q3

REPORT INFORMATION
  Report Type: Spontaneous
  Country: FR (occurrence: FR)
  Receive Date: 20210329
  Receipt Date: 20220812
  Transmission Date: 20221026
  Serious: Yes (Disabling)
  Sender: FDA-Public Use
  Company Number: None

PATIENT
  Age: 72 Year
  Sex: Male
  Weight: 90 kg

DRUGS (1)
  1. KEYTRUDA [Suspect]
     Active Substance: PEMBROLIZUMAB
     Indication: Lung adenocarcinoma
     Dosage: DOSE OF 400MG EVERY 6 WEEKS
     Route: 041
     Dates: start: 20180108, end: 20201016

REACTIONS (2)
  - Visual acuity reduced [Not Recovered/Not Resolved]
  - Chorioretinitis [Not Recovered/Not Resolved]

NARRATIVE: CASE EVENT DATE: 20201127
